FAERS Safety Report 7982518-8 (Version None)
Quarter: 2011Q4

REPORT INFORMATION
  Report Type: 
  Country: None (occurrence: None)
  Receive Date: 20111215
  Receipt Date: 20111214
  Transmission Date: 20120403
  Serious: Yes (Death)
  Sender: FDA-Public Use
  Company Number: PHHY2011JP109055

PATIENT
  Age: 70 Year
  Sex: Male

DRUGS (4)
  1. CONIEL [Concomitant]
     Dosage: 8 MG
     Route: 048
     Dates: start: 20080922
  2. ADALAT [Concomitant]
     Dosage: 160 MG
     Route: 048
     Dates: start: 19970401
  3. OLMESARTAN MEDOXOMIL [Concomitant]
     Dosage: 40 MG
     Route: 048
     Dates: start: 19950227
  4. RASILEZ [Suspect]
     Indication: HYPERTENSION
     Dosage: 150 MG
     Route: 048
     Dates: start: 20110926

REACTIONS (1)
  - MYOCARDIAL ISCHAEMIA [None]
